FAERS Safety Report 5206429-6 (Version None)
Quarter: 2007Q1

REPORT INFORMATION
  Report Type: 
  Country: None (occurrence: None)
  Receive Date: 20070109
  Receipt Date: 20070105
  Transmission Date: 20070707
  Serious: Yes (Death)
  Sender: FDA-Public Use
  Company Number: 233860

PATIENT
  Age: 56 Year
  Sex: Female

DRUGS (2)
  1. RITUXAN [Suspect]
     Indication: RHEUMATOID ARTHRITIS
  2. STEROIDS [Concomitant]

REACTIONS (4)
  - LEUKOCYTOSIS [None]
  - PNEUMONIA [None]
  - RENAL FAILURE ACUTE [None]
  - TOXIC SHOCK SYNDROME [None]
